FAERS Safety Report 8721159 (Version 2)
Quarter: 2013Q1

REPORT INFORMATION
  Report Type: Spontaneous
  Country: US (occurrence: US)
  Receive Date: 20120813
  Receipt Date: 20130211
  Transmission Date: 20140127
  Serious: No
  Sender: FDA-Public Use
  Company Number: US-ASTRAZENECA-2011SE50656

PATIENT
  Age: 65 Year
  Sex: Male
  Weight: 99.8 kg

DRUGS (7)
  1. SEROQUEL [Suspect]
     Indication: INSOMNIA
     Route: 048
     Dates: start: 2008
  2. SEROQUEL [Suspect]
     Indication: INSOMNIA
     Route: 048
     Dates: start: 2010
  3. METOPROLOL [Suspect]
     Indication: BLOOD PRESSURE ABNORMAL
     Route: 048
  4. LISINOPRIL [Concomitant]
     Indication: BLOOD PRESSURE ABNORMAL
  5. CLONAZEPAM [Concomitant]
     Indication: SLEEP DISORDER
  6. HYDROCHLOROTHIAZIDE [Concomitant]
     Indication: BLOOD PRESSURE ABNORMAL
  7. CYMBALTA [Concomitant]
     Indication: DEPRESSION

REACTIONS (6)
  - Adverse event [Unknown]
  - Off label use [Unknown]
  - Depression [Unknown]
  - Nerve injury [Unknown]
  - Muscle atrophy [Unknown]
  - Breast tenderness [Unknown]
